FAERS Safety Report 25303795 (Version 1)
Quarter: 2025Q2

REPORT INFORMATION
  Report Type: Spontaneous
  Country: US (occurrence: US)
  Receive Date: 20250513
  Receipt Date: 20250513
  Transmission Date: 20250717
  Serious: Yes (Other)
  Sender: ALEXION PHARMACEUTICALS
  Company Number: US-AstraZeneca-CH-00866651A

PATIENT
  Weight: 80.739 kg

DRUGS (1)
  1. FARXIGA [Suspect]
     Active Substance: DAPAGLIFLOZIN PROPANEDIOL
     Indication: Endoscopy gastrointestinal
     Dosage: 10 MILLIGRAM, QD

REACTIONS (2)
  - Weight increased [Unknown]
  - Atrial fibrillation [Unknown]
